FAERS Safety Report 22359789 (Version 1)
Quarter: 2023Q2

REPORT INFORMATION
  Report Type: Spontaneous
  Country: US (occurrence: None)
  Receive Date: 20230523
  Receipt Date: 20230523
  Transmission Date: 20230722
  Serious: Yes (Other)
  Sender: FDA-Public Use
  Company Number: None

PATIENT
  Age: 55 Year
  Sex: Female
  Weight: 65.7 kg

DRUGS (4)
  1. SYNTHROID [Suspect]
     Active Substance: LEVOTHYROXINE SODIUM
     Indication: Autoimmune thyroiditis
     Dosage: OTHER QUANTITY : 1 TABLET(S);?
     Route: 048
  2. SYNTHROID [Concomitant]
     Active Substance: LEVOTHYROXINE SODIUM
  3. LIVALO [Concomitant]
     Active Substance: PITAVASTATIN CALCIUM
  4. VIT D-3 [Concomitant]

REACTIONS (24)
  - Rash [None]
  - Bone pain [None]
  - Arthralgia [None]
  - Headache [None]
  - Nausea [None]
  - Tremor [None]
  - Anxiety [None]
  - Mood swings [None]
  - Dizziness [None]
  - Insomnia [None]
  - Diarrhoea [None]
  - Constipation [None]
  - Fatigue [None]
  - Muscular weakness [None]
  - Depressed level of consciousness [None]
  - Coordination abnormal [None]
  - Paraesthesia [None]
  - Back pain [None]
  - Flushing [None]
  - Hot flush [None]
  - Alopecia [None]
  - Confusional state [None]
  - Disorientation [None]
  - Serum sickness-like reaction [None]

NARRATIVE: CASE EVENT DATE: 20220630
